FAERS Safety Report 4381523-0 (Version None)
Quarter: 2004Q2

REPORT INFORMATION
  Report Type: 
  Country: None (occurrence: None)
  Receive Date: 20040621
  Receipt Date: 20040608
  Transmission Date: 20050107
  Serious: Yes (Life-Threatening)
  Sender: FDA-Public Use
  Company Number: ES-GLAXOSMITHKLINE-B0335703A

PATIENT
  Age: 46 Year
  Sex: Male

DRUGS (6)
  1. AMOXICILLIN SODIUM + POTASSIUM CLAVULANATE [Suspect]
     Indication: PYELONEPHRITIS
     Route: 042
     Dates: start: 20031223, end: 20031224
  2. SALMETEROL XINAFOATE [Concomitant]
     Indication: ASTHMA
     Route: 055
     Dates: start: 20031223, end: 20031224
  3. SALBUTAMOL SULPHATE [Concomitant]
     Indication: DRUG USE FOR UNKNOWN INDICATION
     Route: 065
     Dates: start: 20031223
  4. METAMIZOLE MAGNESIUM [Concomitant]
     Indication: PAIN
     Dosage: 2G PER DAY
     Route: 065
     Dates: start: 20031223, end: 20031224
  5. DICLOFENAC SODIUM [Concomitant]
     Indication: DRUG USE FOR UNKNOWN INDICATION
     Dosage: 150MG PER DAY
     Route: 048
     Dates: start: 20031223, end: 20031224
  6. ACETAMINOPHEN [Concomitant]
     Dosage: 1G PER DAY
     Route: 042
     Dates: start: 20031223

REACTIONS (1)
  - BRONCHOSPASM [None]
